FAERS Safety Report 12165507 (Version 1)
Quarter: 2016Q1

REPORT INFORMATION
  Report Type: Spontaneous
  Country: US (occurrence: US)
  Receive Date: 20160309
  Receipt Date: 20160309
  Transmission Date: 20160526
  Serious: Yes (Hospitalization)
  Sender: FDA-Public Use
  Company Number: US-PFIZER INC-2016133680

PATIENT
  Age: 88 Year
  Sex: Male
  Weight: 103.87 kg

DRUGS (1)
  1. TIKOSYN [Suspect]
     Active Substance: DOFETILIDE
     Dosage: 125 UG, 2X/DAY (125 MICRO GRAMS, PO, BID )
     Route: 048

REACTIONS (2)
  - Metabolic function test abnormal [Unknown]
  - Chest pain [Unknown]
